FAERS Safety Report 5107324-3 (Version None)
Quarter: 2006Q3

REPORT INFORMATION
  Report Type: 
  Country: None (occurrence: None)
  Receive Date: 20060914
  Receipt Date: 20060901
  Transmission Date: 20061208
  Serious: Yes (Hospitalization)
  Sender: FDA-Public Use
  Company Number: 2006098883

PATIENT
  Sex: Male

DRUGS (2)
  1. DILANTIN [Suspect]
     Indication: DRUG USE FOR UNKNOWN INDICATION
  2. DEPAKOTE [Suspect]
     Indication: CONVULSION

REACTIONS (6)
  - ANTICONVULSANT DRUG LEVEL DECREASED [None]
  - CONVULSION [None]
  - DRUG INTERACTION [None]
  - NAUSEA [None]
  - TREMOR [None]
  - VOMITING [None]
